FAERS Safety Report 4529261-5 (Version None)
Quarter: 2004Q4

REPORT INFORMATION
  Report Type: 
  Country: None (occurrence: None)
  Receive Date: 20041214
  Receipt Date: 20041201
  Transmission Date: 20050328
  Serious: Yes (Hospitalization, Other)
  Sender: FDA-Public Use
  Company Number: GBR-2004-0001399

PATIENT
  Age: 71 Year
  Sex: Female

DRUGS (12)
  1. OXYCONTIN [Suspect]
     Indication: NEUROPATHIC PAIN
     Dosage: 10 MG, DAILY,
     Dates: start: 20041124, end: 20041125
  2. OXYCONTIN [Suspect]
     Indication: NEUROPATHIC PAIN
     Dosage: 10 MG, DAILY,
     Dates: start: 20041118
  3. GABAPENTIN [Concomitant]
  4. AMOXICILLIN [Concomitant]
  5. SENNA (SENNA) [Concomitant]
  6. ASCORBIC ACID [Concomitant]
  7. LANSOPRAZOLE [Concomitant]
  8. VENLAFAXINE (VENLAFAXINE) [Concomitant]
  9. SIMVASTATIN [Concomitant]
  10. BISOPROLOL (BISOPROLOL) [Concomitant]
  11. FUROSEMIDE [Concomitant]
  12. OXYCONTIN [Concomitant]

REACTIONS (4)
  - DYSPNOEA [None]
  - FALL [None]
  - LOWER RESPIRATORY TRACT INFECTION [None]
  - NAUSEA [None]
